FAERS Safety Report 8485846-5 (Version None)
Quarter: 2012Q2

REPORT INFORMATION
  Report Type: 
  Country: None (occurrence: None)
  Receive Date: 20120626
  Receipt Date: 20120608
  Transmission Date: 20120825
  Serious: Yes (Other)
  Sender: FDA-Public Use
  Company Number: ADR-2012-00839

PATIENT
  Age: 64 Year
  Sex: Male

DRUGS (2)
  1. BACLOFEN [Suspect]
     Indication: CONGENITAL ANOMALY
  2. BACLOFEN [Suspect]
     Indication: MUSCLE SPASTICITY

REACTIONS (2)
  - IMPLANT SITE EFFUSION [None]
  - LIPOMA [None]
